FAERS Safety Report 7538805-0 (Version None)
Quarter: 2011Q2

REPORT INFORMATION
  Report Type: 
  Country: None (occurrence: None)
  Receive Date: 20110610
  Receipt Date: 20110526
  Transmission Date: 20111010
  Serious: Yes (Hospitalization, Other)
  Sender: FDA-Public Use
  Company Number: US-BAYER-201031713NA

PATIENT
  Age: 32 Year
  Sex: Female
  Weight: 77.098 kg

DRUGS (9)
  1. PROMETHAZINE [Concomitant]
     Dosage: 25 MG, UNK
     Route: 048
  2. OXCARBAZEPINE [Concomitant]
     Dosage: 150 MG, UNK
     Route: 048
  3. AZITROMYCINE MERCK [Concomitant]
     Dosage: 250 MG, UNK
     Route: 048
     Dates: start: 20080911
  4. TRINESSA [Concomitant]
  5. YAZ [Suspect]
     Indication: PREMENSTRUAL SYNDROME
     Dosage: UNK UNK, UNK
     Route: 048
     Dates: start: 20080601, end: 20090601
  6. YAZ [Suspect]
  7. HYDROCHLOROTHIAZIDE [Concomitant]
     Dosage: 25 MG, UNK
     Route: 048
  8. BUTALBITAL [Concomitant]
     Route: 048
  9. PROPOXYPHENE HYDROCHLORIDE [Concomitant]
     Dosage: 100 MG, UNK
     Route: 048

REACTIONS (4)
  - THYROID DISORDER [None]
  - CHOLELITHIASIS [None]
  - GALLBLADDER DISORDER [None]
  - THYROID FUNCTION TEST ABNORMAL [None]
